FAERS Safety Report 6762210-8 (Version None)
Quarter: 2010Q2

REPORT INFORMATION
  Report Type: 
  Country: None (occurrence: None)
  Receive Date: 20100609
  Receipt Date: 20100527
  Transmission Date: 20101027
  Serious: Yes (Hospitalization)
  Sender: FDA-Public Use
  Company Number: US-SANOFI-AVENTIS-2010SA032590

PATIENT
  Sex: Male

DRUGS (1)
  1. PLAVIX [Suspect]
     Route: 048

REACTIONS (4)
  - DEMENTIA [None]
  - GINGIVAL BLEEDING [None]
  - THINKING ABNORMAL [None]
  - WEIGHT DECREASED [None]
